FAERS Safety Report 8349064-3 (Version None)
Quarter: 2012Q2

REPORT INFORMATION
  Report Type: 
  Country: None (occurrence: None)
  Receive Date: 20120508
  Receipt Date: 20120424
  Transmission Date: 20120825
  Serious: Yes (Death)
  Sender: FDA-Public Use
  Company Number: FK201201246

PATIENT
  Age: 54 Year
  Sex: Female

DRUGS (3)
  1. G-CSF FILGRASTIM (FILGRASTIM) [Concomitant]
  2. CYTARABINE [Suspect]
     Indication: ACUTE MYELOID LEUKAEMIA
     Dosage: 500 MG/M2, DAYS 1-3, INTRAVENOUS
     Route: 042
  3. DAUNORUBICIN HCL [Suspect]
     Indication: ACUTE MYELOID LEUKAEMIA
     Dosage: 60 MG/M2, DAYS 1-3, INTRAVENOUS
     Route: 042

REACTIONS (1)
  - PERITONITIS [None]
